FAERS Safety Report 6678944-X (Version None)
Quarter: 2010Q2

REPORT INFORMATION
  Report Type: 
  Country: None (occurrence: None)
  Receive Date: 20100402
  Receipt Date: 20090410
  Transmission Date: 20101027
  Serious: Yes (Hospitalization)
  Sender: FDA-Public Use
  Company Number: 2009198512

PATIENT
  Age: 73 Year
  Sex: Female

DRUGS (9)
  1. ARGATROBAN [Suspect]
     Indication: HEPARIN-INDUCED THROMBOCYTOPENIA
     Dosage: 9.4 UG/KG, 1 IN 1 MIN, INTRAVENOUS
     Route: 042
     Dates: start: 20090328
  2. INSULIN (INSULIN) [Concomitant]
  3. ASPIRIN [Concomitant]
  4. COREG [Concomitant]
  5. CARDIZEM [Concomitant]
  6. GLIPIZIDE [Concomitant]
  7. PERCOCET [Concomitant]
  8. RAMIPRIL [Concomitant]
  9. ZOLPIDEM [Concomitant]

REACTIONS (1)
  - THERAPEUTIC RESPONSE DECREASED [None]
